FAERS Safety Report 11067820 (Version 2)
Quarter: 2016Q2

REPORT INFORMATION
  Report Type: Report from Study
  Country: NZ (occurrence: NZ)
  Receive Date: 20150427
  Receipt Date: 20160510
  Transmission Date: 20160815
  Serious: Yes (Other)
  Sender: FDA-Public Use
  Company Number: NZ-EISAI MEDICAL RESEARCH-EC-2015-006216

PATIENT
  Age: 71 Year
  Sex: Male
  Weight: 120 kg

DRUGS (12)
  1. LENVATINIB [Suspect]
     Active Substance: LENVATINIB
     Route: 048
     Dates: start: 20150401, end: 20150412
  2. CILAZAPRIL [Concomitant]
     Active Substance: CILAZAPRIL ANHYDROUS
  3. DILTIAZEM HYDROCHLORIDE EXTENDED RELEASE [Concomitant]
     Active Substance: DILTIAZEM HYDROCHLORIDE
  4. THYROXINE [Concomitant]
     Active Substance: LEVOTHYROXINE
  5. FUROSEMIDE. [Concomitant]
     Active Substance: FUROSEMIDE
  6. LENVATINIB [Suspect]
     Active Substance: LENVATINIB
     Indication: PAPILLARY THYROID CANCER
     Route: 048
     Dates: start: 20150327, end: 20150331
  7. METFORMIN [Concomitant]
     Active Substance: METFORMIN HYDROCHLORIDE
  8. INSULIN [Concomitant]
     Active Substance: INSULIN NOS
  9. FELODIPINE. [Concomitant]
     Active Substance: FELODIPINE
  10. BEZAFIBRATE [Concomitant]
     Active Substance: BEZAFIBRATE
  11. ALLOPURINOL. [Concomitant]
     Active Substance: ALLOPURINOL
  12. LENVATINIB [Suspect]
     Active Substance: LENVATINIB
     Route: 048
     Dates: start: 20150413, end: 20160428

REACTIONS (2)
  - Proteinuria [Not Recovered/Not Resolved]
  - Stomatitis [Recovered/Resolved]

NARRATIVE: CASE EVENT DATE: 20150330
